FAERS Safety Report 18794173 (Version 1)
Quarter: 2021Q1

REPORT INFORMATION
  Report Type: Spontaneous
  Country: US (occurrence: US)
  Receive Date: 20210127
  Receipt Date: 20210127
  Transmission Date: 20210419
  Serious: Yes (Other)
  Sender: FDA-Public Use
  Company Number: US-PURDUE-USA-2020-0199622

PATIENT
  Sex: Male

DRUGS (1)
  1. HYDROCODONE BITARTRATE AND ACETAMINOPHEN [Suspect]
     Active Substance: ACETAMINOPHEN\HYDROCODONE BITARTRATE
     Indication: BACK PAIN
     Route: 048

REACTIONS (7)
  - Drug dependence [Unknown]
  - Amnesia [Unknown]
  - Overdose [Unknown]
  - Depression [Unknown]
  - Sleep deficit [Unknown]
  - Suicidal ideation [Unknown]
  - Anxiety [Unknown]
